FAERS Safety Report 11813687 (Version 2)
Quarter: 2016Q1

REPORT INFORMATION
  Report Type: Spontaneous
  Country: AU (occurrence: AU)
  Receive Date: 20151209
  Receipt Date: 20160105
  Transmission Date: 20160525
  Serious: Yes (Death, Hospitalization, Other)
  Sender: FDA-Public Use
  Company Number: AU-TOLMAR, INC.-2015AU010766

PATIENT
  Age: 77 Year
  Sex: Male

DRUGS (1)
  1. ELIGARD [Suspect]
     Active Substance: LEUPROLIDE ACETATE
     Indication: PROSTATE CANCER
     Dosage: 22.5 MG, Q3MONTHS
     Route: 065
     Dates: start: 20150918

REACTIONS (5)
  - Prostate cancer [Unknown]
  - Gastric cancer [Unknown]
  - Circulatory collapse [Unknown]
  - Malaise [Unknown]
  - Death [Fatal]

NARRATIVE: CASE EVENT DATE: 20151130
